FAERS Safety Report 18163093 (Version 1)
Quarter: 2020Q3

REPORT INFORMATION
  Report Type: Spontaneous
  Country: US (occurrence: US)
  Receive Date: 20200818
  Receipt Date: 20200818
  Transmission Date: 20201103
  Serious: Yes (Other)
  Sender: FDA-Public Use
  Company Number: None

PATIENT
  Age: 57 Year
  Sex: Male
  Weight: 76.5 kg

DRUGS (1)
  1. OLANZAPINE 5MG [Suspect]
     Active Substance: OLANZAPINE
     Indication: BIPOLAR DISORDER
     Dosage: ?          QUANTITY:30 TABLET(S);?
     Route: 048
     Dates: start: 20200708, end: 20200807

REACTIONS (8)
  - Agitation [None]
  - Aggression [None]
  - Mania [None]
  - Self-injurious ideation [None]
  - Insomnia [None]
  - Insurance issue [None]
  - Product substitution issue [None]
  - Impaired driving ability [None]

NARRATIVE: CASE EVENT DATE: 20200708
